FAERS Safety Report 7551124-1 (Version None)
Quarter: 2011Q2

REPORT INFORMATION
  Report Type: 
  Country: None (occurrence: None)
  Receive Date: 20110616
  Receipt Date: 20110602
  Transmission Date: 20111010
  Serious: Yes (Hospitalization)
  Sender: FDA-Public Use
  Company Number: US-ELI_LILLY_AND_COMPANY-US201010007222

PATIENT
  Sex: Female

DRUGS (14)
  1. METOPROLOL TARTRATE [Concomitant]
     Dosage: 12.5 MG, 2/D
  2. LAXATIVES [Concomitant]
  3. FORTEO [Suspect]
     Indication: OSTEOPOROSIS
     Dosage: 20 UG, DAILY (1/D)
     Dates: start: 20100101, end: 20100101
  4. FORTEO [Suspect]
     Dosage: 20 UG, QD
     Dates: end: 20110501
  5. LOTREL [Concomitant]
  6. OSCAL [Concomitant]
     Dosage: UNK, 2/D
  7. SPIRIVA [Concomitant]
     Dosage: UNK, DAILY (1/D)
  8. PREDNISONE [Concomitant]
     Dosage: 5 MG, DAILY (1/D)
  9. PERCOCET [Concomitant]
     Dosage: UNK, AS NEEDED
  10. ADVAIR DISKUS 100/50 [Concomitant]
     Dosage: UNK, 2/D
  11. XOPENEX [Concomitant]
     Dosage: UNK, 4/D
     Route: 055
  12. MUCINEX [Concomitant]
  13. FORTEO [Suspect]
     Dosage: 20 UG, QD
     Dates: end: 20110301
  14. CENTRUM [Concomitant]
     Dosage: UNK, DAILY (1/D)

REACTIONS (10)
  - DIZZINESS [None]
  - GASTRIC DISORDER [None]
  - NAUSEA [None]
  - COMPRESSION FRACTURE [None]
  - PROCEDURAL PAIN [None]
  - EMPHYSEMA [None]
  - DYSPNOEA [None]
  - DYSPEPSIA [None]
  - BACK PAIN [None]
  - ABDOMINAL PAIN UPPER [None]
